FAERS Safety Report 9269926 (Version 4)
Quarter: 2013Q3

REPORT INFORMATION
  Report Type: Spontaneous
  Country: US (occurrence: US)
  Receive Date: 20130503
  Receipt Date: 20130722
  Transmission Date: 20140515
  Serious: No
  Sender: FDA-Public Use
  Company Number: US-PFIZER INC-2013135426

PATIENT
  Sex: Female
  Weight: 76.19 kg

DRUGS (5)
  1. LEVOXYL [Suspect]
     Indication: HYPOTHYROIDISM
     Dosage: UNK
     Dates: start: 2003
  2. LEVOXYL [Suspect]
     Dosage: 75 UG, UNK
  3. LEVOXYL [Suspect]
     Dosage: 50 UG, UNK
  4. LEVOXYL [Suspect]
     Dosage: 62.5 UG, (2 AND HALF TABLETS), UNK
  5. LEVOXYL [Suspect]
     Dosage: UNK

REACTIONS (2)
  - Drug intolerance [Unknown]
  - Drug effect incomplete [Unknown]
